FAERS Safety Report 5086199-5 (Version None)
Quarter: 2006Q3

REPORT INFORMATION
  Report Type: 
  Country: None (occurrence: None)
  Receive Date: 20060818
  Receipt Date: 20060810
  Transmission Date: 20061208
  Serious: Yes (Death)
  Sender: FDA-Public Use
  Company Number: 2006JP001242

PATIENT
  Age: 77 Year
  Sex: Female
  Weight: 40 kg

DRUGS (5)
  1. FUNGUARD [Suspect]
     Indication: FUNGAL INFECTION
     Dosage: 100 MG, UNKNOWN/D, IV DRIP
     Route: 041
     Dates: start: 20051224, end: 20051228
  2. DECADRON [Suspect]
     Dosage: 40 MG, UNKNOWN/D, UNKNOWN
     Dates: end: 20051227
  3. PENTCILLIN            (PIPERACILLIN SODIUM) INJECTION [Concomitant]
  4. FIRSTCIN           (CEFOZOPRAN HYDROCHLORIDE) INJECTION [Concomitant]
  5. TOBRAMYCIN SULFATE [Concomitant]

REACTIONS (1)
  - GASTROINTESTINAL PERFORATION [None]
